FAERS Safety Report 25593575 (Version 3)
Quarter: 2025Q4

REPORT INFORMATION
  Report Type: Spontaneous
  Country: US (occurrence: US)
  Receive Date: 20250722
  Receipt Date: 20251007
  Transmission Date: 20260118
  Serious: Yes (Life-Threatening, Hospitalization, Other)
  Sender: CIPLA
  Company Number: US-CIPLA (EU) LIMITED-2025US08842

PATIENT

DRUGS (3)
  1. BUPROPION [Suspect]
     Active Substance: BUPROPION
     Dosage: 19.5 GRAM, UNK (SUSTAINED RELEASE)
     Route: 048
  2. CITALOPRAM [Suspect]
     Active Substance: CITALOPRAM
     Dosage: 1200 MILLIGRAM, UNK
     Route: 048
  3. TRAZODONE [Suspect]
     Active Substance: TRAZODONE HYDROCHLORIDE
     Dosage: UNK (UNKNOWN QUANTITY)
     Route: 048

REACTIONS (5)
  - Intentional overdose [Unknown]
  - Encephalopathy [Recovered/Resolved]
  - Hypoxia [Recovered/Resolved]
  - Serotonin syndrome [Recovered/Resolved]
  - Cardiotoxicity [Recovered/Resolved]
